FAERS Safety Report 10227789 (Version 1)
Quarter: 2014Q2

REPORT INFORMATION
  Report Type: Spontaneous
  Country: US (occurrence: None)
  Receive Date: 20140609
  Receipt Date: 20140609
  Transmission Date: 20141212
  Serious: Yes (Disabling)
  Sender: FDA-Public Use
  Company Number: None

PATIENT
  Age: 54 Year
  Sex: Female
  Weight: 68.04 kg

DRUGS (1)
  1. CLINDAMYCIN [Suspect]
     Indication: ORAL INFECTION
     Dosage: 1 PILL TIWCE DAILY
     Route: 048
     Dates: start: 20140606, end: 20140606

REACTIONS (3)
  - Dyspnoea [None]
  - Dysphagia [None]
  - Apnoea [None]
